FAERS Safety Report 4656719-0 (Version None)
Quarter: 2005Q2

REPORT INFORMATION
  Report Type: 
  Country: None (occurrence: None)
  Receive Date: 20050509
  Receipt Date: 20050429
  Transmission Date: 20051028
  Serious: Yes (Other)
  Sender: FDA-Public Use
  Company Number: US-KINGPHARMUSA00001-K200500558

PATIENT
  Age: 72 Year
  Sex: Female

DRUGS (2)
  1. SEPTRA IV INFUSION [Suspect]
     Indication: INFECTION PROPHYLAXIS
     Dosage: 1.44 G, BID
     Route: 042
     Dates: start: 20050408, end: 20050401
  2. SEPTRA IV INFUSION [Suspect]
     Dosage: 1.92 G, BID
     Route: 042
     Dates: start: 20050401, end: 20050418

REACTIONS (1)
  - DEAFNESS [None]
